FAERS Safety Report 13369150 (Version 1)
Quarter: 2017Q1

REPORT INFORMATION
  Report Type: Spontaneous
  Country: US (occurrence: US)
  Receive Date: 20170324
  Receipt Date: 20170324
  Transmission Date: 20170429
  Serious: Yes (Hospitalization)
  Sender: FDA-Public Use
  Company Number: None

PATIENT
  Age: 74 Year
  Sex: Male
  Weight: 144.5 kg

DRUGS (2)
  1. ASPIRIN. [Suspect]
     Active Substance: ASPIRIN
     Indication: CARDIOVASCULAR DISORDER
     Route: 048
     Dates: start: 20150706
  2. WARFARIN [Suspect]
     Active Substance: WARFARIN
     Indication: DEEP VEIN THROMBOSIS
     Dosage: MG PO
     Route: 048
     Dates: start: 20150709, end: 20170218

REACTIONS (8)
  - Lethargy [None]
  - Haemoglobin decreased [None]
  - Syncope [None]
  - Haematochezia [None]
  - Gastrointestinal arteriovenous malformation [None]
  - Blood pressure decreased [None]
  - Incoherent [None]
  - Heart rate decreased [None]

NARRATIVE: CASE EVENT DATE: 20170213
